FAERS Safety Report 16257733 (Version 1)
Quarter: 2019Q2

REPORT INFORMATION
  Report Type: Report from Study
  Country: US (occurrence: US)
  Receive Date: 20190430
  Receipt Date: 20190430
  Transmission Date: 20190711
  Serious: No
  Sender: FDA-Public Use
  Company Number: US-AGIOS-1904US01092

PATIENT

DRUGS (3)
  1. LOSARTAN. [Concomitant]
     Active Substance: LOSARTAN
     Indication: BLOOD PRESSURE MEASUREMENT
  2. TIBSOVO [Suspect]
     Active Substance: IVOSIDENIB
     Indication: ACUTE LEUKAEMIA
     Dosage: 250 MILLIGRAM, 2 TABLETS (500 MG), QD
     Dates: start: 20190324
  3. METOPROLOL. [Concomitant]
     Active Substance: METOPROLOL
     Indication: BLOOD PRESSURE MEASUREMENT

REACTIONS (5)
  - Platelet count abnormal [Not Recovered/Not Resolved]
  - Loss of consciousness [Not Recovered/Not Resolved]
  - Hypotension [Not Recovered/Not Resolved]
  - Mobility decreased [Not Recovered/Not Resolved]
  - Dyspnoea [Not Recovered/Not Resolved]
